FAERS Safety Report 18013621 (Version 1)
Quarter: 2020Q3

REPORT INFORMATION
  Report Type: Spontaneous
  Country: US (occurrence: US)
  Receive Date: 20200711
  Receipt Date: 20200711
  Transmission Date: 20201103
  Serious: Yes (Other)
  Sender: FDA-Public Use
  Company Number: None

PATIENT
  Age: 48 Year
  Sex: Female
  Weight: 60.75 kg

DRUGS (5)
  1. RIZATRIPTAN. [Concomitant]
     Active Substance: RIZATRIPTAN
  2. CLARITIN?D NOS [Concomitant]
     Active Substance: LORATADINE\PSEUDOEPHEDRINE SULFATE
  3. ISAGENIX COMPLETE ESSENTIALS MULTIVITAMINS [Concomitant]
  4. XYZAL [Concomitant]
     Active Substance: LEVOCETIRIZINE DIHYDROCHLORIDE
  5. LEVOFLOXACIN, 500MG [Suspect]
     Active Substance: LEVOFLOXACIN
     Indication: SINUSITIS
     Dosage: ?          QUANTITY:14 TABLET(S);?
     Route: 048
     Dates: start: 20200423, end: 20200507

REACTIONS (3)
  - Muscular weakness [None]
  - Arthralgia [None]
  - Arthritis [None]

NARRATIVE: CASE EVENT DATE: 20200501
